FAERS Safety Report 7512657-7 (Version None)
Quarter: 2011Q2

REPORT INFORMATION
  Report Type: 
  Country: None (occurrence: None)
  Receive Date: 20110531
  Receipt Date: 20110517
  Transmission Date: 20111010
  Serious: Yes (Other)
  Sender: FDA-Public Use
  Company Number: SE-JNJFOC-20110507758

PATIENT
  Age: 71 Year
  Sex: Female

DRUGS (9)
  1. CALCICHEW-D3 [Concomitant]
     Dosage: 500 MG/400 IE
  2. AZATHIOPRINE [Suspect]
     Route: 048
     Dates: start: 20070101, end: 20100801
  3. PLENDIL [Concomitant]
  4. PREDNISOLONE [Concomitant]
  5. REMICADE [Suspect]
     Indication: RHEUMATOID ARTHRITIS
     Route: 042
     Dates: start: 20030201
  6. FOSAMAX [Concomitant]
  7. LASIX [Concomitant]
  8. KETOPROFEN [Concomitant]
  9. AZATHIOPRINE [Suspect]
     Indication: RHEUMATOID ARTHRITIS
     Route: 048
     Dates: start: 20030201

REACTIONS (1)
  - SQUAMOUS CELL CARCINOMA OF SKIN [None]
